FAERS Safety Report 6756173-9 (Version None)
Quarter: 2010Q2

REPORT INFORMATION
  Report Type: 
  Country: None (occurrence: None)
  Receive Date: 20100603
  Receipt Date: 20100603
  Transmission Date: 20101027
  Serious: Yes (Hospitalization)
  Sender: FDA-Public Use
  Company Number: None

PATIENT
  Age: 42 Year
  Sex: Female
  Weight: 58.9676 kg

DRUGS (1)
  1. DESONIDE [Suspect]
     Indication: LASER THERAPY
     Dosage: APPLIED ONE TIME TO SKIN SINGLE APPLICATION
     Dates: start: 20100514

REACTIONS (4)
  - APPLICATION SITE BURN [None]
  - APPLICATION SITE PAIN [None]
  - BURNS SECOND DEGREE [None]
  - PRODUCT QUALITY ISSUE [None]
